FAERS Safety Report 9613214 (Version 3)
Quarter: 2014Q1

REPORT INFORMATION
  Report Type: Spontaneous
  Country: IE (occurrence: IE)
  Receive Date: 20131010
  Receipt Date: 20140204
  Transmission Date: 20141002
  Serious: Yes (Other)
  Sender: FDA-Public Use
  Company Number: PHFR2013IE003382

PATIENT
  Age: 52 Year
  Sex: Male

DRUGS (3)
  1. CLOZARIL [Suspect]
     Indication: SCHIZOPHRENIA
     Dosage: 300 MG, DAILY
     Route: 048
     Dates: start: 200806
  2. CLOZARIL [Suspect]
     Dosage: UNK
     Route: 048
     Dates: start: 20080704
  3. PAROXETINE [Concomitant]
     Indication: SOCIAL PHOBIA
     Dosage: 20 MG, DAILY
     Route: 048
     Dates: start: 200806

REACTIONS (2)
  - Type 2 diabetes mellitus [Not Recovered/Not Resolved]
  - Eosinophilia [Not Recovered/Not Resolved]
